FAERS Safety Report 5230965-X (Version None)
Quarter: 2007Q1

REPORT INFORMATION
  Report Type: 
  Country: None (occurrence: None)
  Receive Date: 20070206
  Receipt Date: 20070131
  Transmission Date: 20070707
  Serious: Yes (Other)
  Sender: FDA-Public Use
  Company Number: GB-GLAXOSMITHKLINE-B0360847A

PATIENT
  Sex: Female

DRUGS (3)
  1. PAROXETINE HYDROCHLORIDE [Suspect]
     Indication: DEPRESSION
     Dosage: 20MG PER DAY
     Route: 065
     Dates: start: 20010201, end: 20040401
  2. CITALOPRAM [Concomitant]
  3. ST JOHNS WORT [Concomitant]

REACTIONS (9)
  - ANGER [None]
  - CONVULSION [None]
  - DISTURBANCE IN ATTENTION [None]
  - DRUG WITHDRAWAL SYNDROME [None]
  - FATIGUE [None]
  - MAJOR DEPRESSION [None]
  - MEMORY IMPAIRMENT [None]
  - MOOD SWINGS [None]
  - POOR QUALITY SLEEP [None]
